FAERS Safety Report 8436104-6 (Version None)
Quarter: 2012Q2

REPORT INFORMATION
  Report Type: 
  Country: None (occurrence: None)
  Receive Date: 20120614
  Receipt Date: 20120607
  Transmission Date: 20120825
  Serious: Yes (Other)
  Sender: FDA-Public Use
  Company Number: PHHY2012NZ049160

PATIENT
  Sex: Female

DRUGS (1)
  1. CLOZARIL [Suspect]
     Indication: SCHIZOPHRENIA, PARANOID TYPE
     Dosage: 300 MG, UNK
     Dates: start: 20120516

REACTIONS (8)
  - AGGRESSION [None]
  - VOMITING [None]
  - PARANOIA [None]
  - LIVER FUNCTION TEST ABNORMAL [None]
  - NAUSEA [None]
  - ABDOMINAL PAIN [None]
  - DRUG-INDUCED LIVER INJURY [None]
  - AGITATION [None]
